FAERS Safety Report 5872785-9 (Version None)
Quarter: 2008Q3

REPORT INFORMATION
  Report Type: 
  Country: None (occurrence: None)
  Receive Date: 20080905
  Receipt Date: 20080828
  Transmission Date: 20090109
  Serious: Yes (Other)
  Sender: FDA-Public Use
  Company Number: DK-PFIZER INC-2007105231

PATIENT
  Sex: Female

DRUGS (4)
  1. GENOTROPIN [Suspect]
     Indication: TURNER'S SYNDROME
     Dosage: DAILY DOSE:2I.U.-FREQ:INTERVAL: DAILY
     Route: 058
     Dates: start: 19980429, end: 20011114
  2. GENOTROPIN [Suspect]
     Dosage: DAILY DOSE:.8MG-FREQ:INTERVAL: DAILY
     Route: 058
     Dates: start: 20011115, end: 20040203
  3. GENOTROPIN [Suspect]
     Dosage: DAILY DOSE:1MG-FREQ:INTERVAL: DAILY
     Route: 058
     Dates: start: 20040204, end: 20040528
  4. OESTRADIOL [Concomitant]
     Route: 048
     Dates: start: 20031022, end: 20060615

REACTIONS (1)
  - MELANOCYTIC NAEVUS [None]
